FAERS Safety Report 10658710 (Version 1)
Quarter: 2014Q4

REPORT INFORMATION
  Report Type: Spontaneous
  Country: US (occurrence: US)
  Receive Date: 20141217
  Receipt Date: 20141217
  Transmission Date: 20150529
  Serious: No
  Sender: FDA-Public Use
  Company Number: US-009507513-1412USA008313

PATIENT
  Age: 56 Year
  Sex: Female

DRUGS (1)
  1. DULERA [Suspect]
     Active Substance: FORMOTEROL FUMARATE DIHYDRATE\MOMETASONE FUROATE
     Indication: ASTHMA
     Dosage: 200 MICROGRAM, BID
     Route: 055

REACTIONS (4)
  - Swelling face [Unknown]
  - Tremor [Unknown]
  - Eye swelling [Unknown]
  - Mood swings [Unknown]
